FAERS Safety Report 7544521-1 (Version None)
Quarter: 2011Q2

REPORT INFORMATION
  Report Type: 
  Country: None (occurrence: None)
  Receive Date: 20110613
  Receipt Date: 20110523
  Transmission Date: 20111010
  Serious: Yes (Other)
  Sender: FDA-Public Use
  Company Number: US-MERCK-1105USA02064

PATIENT
  Age: 74 Year
  Sex: Male
  Weight: 91 kg

DRUGS (8)
  1. METHOTREXATE [Concomitant]
     Route: 065
  2. PREDNISONE [Concomitant]
     Route: 065
  3. CYCLOPHOSPHAMIDE AND SEMUSTINE AND VINCRISTINE SULFATE [Concomitant]
     Route: 065
  4. SINEMET [Suspect]
     Indication: PARKINSON'S DISEASE
     Route: 048
     Dates: start: 20110406
  5. FOLIC ACID [Concomitant]
     Route: 065
  6. JANUVIA [Concomitant]
     Route: 048
  7. METFORMIN [Concomitant]
     Route: 065
  8. SINEMET [Suspect]
     Route: 048

REACTIONS (5)
  - NERVOUS SYSTEM DISORDER [None]
  - IRRITABILITY [None]
  - PARKINSON'S DISEASE [None]
  - DRUG INEFFECTIVE [None]
  - DYSKINESIA [None]
